FAERS Safety Report 24010301 (Version 2)
Quarter: 2024Q3

REPORT INFORMATION
  Report Type: Spontaneous
  Country: US (occurrence: US)
  Receive Date: 20240625
  Receipt Date: 20240701
  Transmission Date: 20241017
  Serious: Yes (Life-Threatening, Hospitalization)
  Sender: PFIZER
  Company Number: US-AstraZeneca-2024A101341

PATIENT
  Age: 41 Year
  Sex: Female

DRUGS (1)
  1. METOPROLOL TARTRATE [Suspect]
     Active Substance: METOPROLOL TARTRATE
     Indication: Pulmonary hypertension
     Dosage: 100 MG
     Route: 048

REACTIONS (3)
  - Encephalopathy [Unknown]
  - Cardiogenic shock [Unknown]
  - Off label use [Unknown]
